FAERS Safety Report 15083326 (Version 3)
Quarter: 2018Q3

REPORT INFORMATION
  Report Type: Report from Study
  Country: US (occurrence: US)
  Receive Date: 20180628
  Receipt Date: 20180919
  Transmission Date: 20181010
  Serious: Yes (Other)
  Sender: FDA-Public Use
  Company Number: US-JNJFOC-20180635515

PATIENT
  Age: 71 Year
  Sex: Female
  Weight: 90.72 kg

DRUGS (31)
  1. VENTOLIN [Concomitant]
     Active Substance: ALBUTEROL SULFATE
     Route: 065
  2. LASIX [Concomitant]
     Active Substance: FUROSEMIDE
     Route: 065
  3. FISH OIL [Concomitant]
     Active Substance: FISH OIL
     Dosage: BY MOUTH
     Route: 065
  4. CRESTOR [Concomitant]
     Active Substance: ROSUVASTATIN CALCIUM
     Route: 065
  5. CRESTOR [Concomitant]
     Active Substance: ROSUVASTATIN CALCIUM
     Route: 065
  6. MELATONIN [Concomitant]
     Active Substance: MELATONIN
     Indication: SLEEP DISORDER THERAPY
     Route: 065
  7. CLEARLAX [Concomitant]
     Active Substance: POLYETHYLENE GLYCOL 3350
     Route: 065
     Dates: start: 201410
  8. FUROSEMIDE. [Concomitant]
     Active Substance: FUROSEMIDE
     Dosage: BY MOUTH
     Route: 048
  9. ESTROGEL [Concomitant]
     Active Substance: ESTRADIOL
     Dosage: 0.75 MG/1.25 GM (0.06%) DAILY
     Route: 065
  10. REMICADE [Suspect]
     Active Substance: INFLIXIMAB
     Indication: CROHN^S DISEASE
     Route: 042
     Dates: start: 20160317, end: 201701
  11. FISH OIL [Concomitant]
     Active Substance: FISH OIL
     Route: 065
  12. FINACEA [Concomitant]
     Active Substance: AZELAIC ACID
     Dosage: AFFECTED AREA DAILY, 50 GM.
     Route: 065
  13. REA LO [Concomitant]
     Route: 065
  14. PRILOSEC [Concomitant]
     Active Substance: OMEPRAZOLE MAGNESIUM
     Dosage: BY MOUTH 1 HOUR BEFORE DINNER
     Route: 048
     Dates: start: 200812
  15. HYOMAX [Concomitant]
     Active Substance: HYOSCYAMINE SULFATE
     Indication: ABDOMINAL PAIN
     Dosage: DISSOLVE UNDER TONGUE EVERY 4?6 HOURS AS NEEDED
     Route: 065
  16. HYOSCYAMINE SULFATE. [Concomitant]
     Active Substance: HYOSCYAMINE SULFATE
     Route: 065
  17. REMICADE [Suspect]
     Active Substance: INFLIXIMAB
     Indication: CROHN^S DISEASE
     Route: 042
     Dates: start: 2017
  18. VITAMIN D [Concomitant]
     Active Substance: CHOLECALCIFEROL
     Route: 065
  19. RAMIPRIL. [Concomitant]
     Active Substance: RAMIPRIL
     Route: 065
  20. PENTASA [Concomitant]
     Active Substance: MESALAMINE
     Route: 048
     Dates: start: 200812
  21. PENTASA [Concomitant]
     Active Substance: MESALAMINE
     Route: 048
  22. BISOPROLOL FUMARATE. [Concomitant]
     Active Substance: BISOPROLOL FUMARATE
     Dosage: 10?6.25 UNITS UNSPECIFIED
     Route: 065
  23. SYMBICORT [Concomitant]
     Active Substance: BUDESONIDE\FORMOTEROL FUMARATE DIHYDRATE
     Dosage: 80?4.5 MCG/ACT
     Route: 065
  24. BENADRYL [Concomitant]
     Active Substance: DIPHENHYDRAMINE HYDROCHLORIDE
     Indication: SLEEP DISORDER THERAPY
     Route: 065
  25. BENADRYL [Concomitant]
     Active Substance: DIPHENHYDRAMINE HYDROCHLORIDE
     Indication: HYPERSENSITIVITY
     Route: 065
  26. BENADRYL [Concomitant]
     Active Substance: DIPHENHYDRAMINE HYDROCHLORIDE
     Indication: SLEEP DISORDER THERAPY
     Route: 065
  27. MELATONIN [Concomitant]
     Active Substance: MELATONIN
     Indication: SLEEP DISORDER THERAPY
     Route: 065
  28. HYOMAX [Concomitant]
     Active Substance: HYOSCYAMINE SULFATE
     Indication: CHEST PAIN
     Dosage: DISSOLVE UNDER TONGUE EVERY 4?6 HOURS AS NEEDED
     Route: 065
  29. VITAMIN D [Concomitant]
     Active Substance: CHOLECALCIFEROL
     Route: 065
  30. BENADRYL [Concomitant]
     Active Substance: DIPHENHYDRAMINE HYDROCHLORIDE
     Indication: HYPERSENSITIVITY
     Route: 065
  31. HYDROCHLOROTHIAZIDE. [Concomitant]
     Active Substance: HYDROCHLOROTHIAZIDE
     Dosage: 10?6.25 UNITS UNSPECIFIED
     Route: 065

REACTIONS (4)
  - Systemic lupus erythematosus [Recovered/Resolved]
  - Blood pressure increased [Recovered/Resolved]
  - Sjogren^s syndrome [Unknown]
  - Polyarthritis [Unknown]

NARRATIVE: CASE EVENT DATE: 20161203
